FAERS Safety Report 7306001-8 (Version None)
Quarter: 2011Q1

REPORT INFORMATION
  Report Type: 
  Country: None (occurrence: None)
  Receive Date: 20110222
  Receipt Date: 20110217
  Transmission Date: 20110831
  Serious: Yes (Hospitalization, Other)
  Sender: FDA-Public Use
  Company Number: BR-ABBOTT-11P-020-0706143-00

PATIENT
  Sex: Female
  Weight: 110 kg

DRUGS (4)
  1. METHOTREXATE [Concomitant]
     Indication: RHEUMATOID ARTHRITIS
     Route: 048
     Dates: start: 20100101
  2. LOSARTAN [Concomitant]
     Indication: HYPERTENSION
     Route: 048
     Dates: start: 20050101
  3. HUMIRA [Suspect]
     Indication: RHEUMATOID ARTHRITIS
     Route: 058
     Dates: start: 20070907
  4. NORTRIPTYLINE 50MG, RANITIDINE 150MG, PREDNISONE 15MG, INDOMETHACIN 50 [Concomitant]
     Indication: RHEUMATOID ARTHRITIS
     Route: 048
     Dates: start: 20020101

REACTIONS (6)
  - ANKLE FRACTURE [None]
  - SPINAL DEFORMITY [None]
  - PARAESTHESIA [None]
  - BODY HEIGHT DECREASED [None]
  - GAIT DISTURBANCE [None]
  - JOINT CREPITATION [None]
